FAERS Safety Report 25136794 (Version 1)
Quarter: 2025Q1

REPORT INFORMATION
  Report Type: Spontaneous
  Country: US (occurrence: US)
  Receive Date: 20250328
  Receipt Date: 20250328
  Transmission Date: 20250408
  Serious: No
  Sender: NOVARTIS
  Company Number: US-002147023-NVSC2025US050499

PATIENT
  Age: 62 Year
  Sex: Male
  Weight: 80.73 kg

DRUGS (1)
  1. COSENTYX [Suspect]
     Active Substance: SECUKINUMAB
     Indication: Product used for unknown indication
     Dosage: 150 MILLIGRAM PER MILLILITRE, QMO
     Route: 058

REACTIONS (4)
  - Drug dose omission by device [Unknown]
  - Accidental exposure to product [Unknown]
  - Needle issue [Unknown]
  - Incorrect dose administered by device [Unknown]
